FAERS Safety Report 9455366 (Version 1)
Quarter: 2013Q3

REPORT INFORMATION
  Report Type: Report from Study
  Country: US (occurrence: US)
  Receive Date: 20130813
  Receipt Date: 20130813
  Transmission Date: 20140515
  Serious: Yes (Disabling)
  Sender: FDA-Public Use
  Company Number: PHHY2013US084085

PATIENT
  Age: 53 Year
  Sex: Female

DRUGS (4)
  1. GILENYA [Suspect]
     Indication: MULTIPLE SCLEROSIS
     Dosage: 0.5 MG, QD
     Route: 048
     Dates: start: 20120801, end: 20120819
  2. TYLENOL [Concomitant]
     Indication: PAIN
  3. NORCO [Concomitant]
     Indication: PAIN
  4. CYMBALTA [Concomitant]
     Indication: PAIN
     Dosage: 30 MG, BID

REACTIONS (4)
  - Dysarthria [Recovered/Resolved with Sequelae]
  - Laceration [Recovered/Resolved with Sequelae]
  - Fall [Recovered/Resolved with Sequelae]
  - Gait disturbance [Recovered/Resolved with Sequelae]
